FAERS Safety Report 4389376-1 (Version None)
Quarter: 2004Q3

REPORT INFORMATION
  Report Type: 
  Country: None (occurrence: None)
  Receive Date: 20040701
  Receipt Date: 20040701
  Transmission Date: 20050211
  Serious: Yes (Hospitalization)
  Sender: FDA-Public Use
  Company Number: None

PATIENT
  Age: 71 Year
  Sex: Male
  Weight: 83.4619 kg

DRUGS (1)
  1. IOHEXOL INJ 240 MG I/ML [Suspect]
     Indication: COMPUTERISED TOMOGRAM
     Dates: start: 20040306, end: 20040306

REACTIONS (3)
  - HAEMODIALYSIS [None]
  - PULMONARY EMBOLISM [None]
  - RENAL FAILURE ACUTE [None]
